FAERS Safety Report 12430387 (Version 2)
Quarter: 2016Q2

REPORT INFORMATION
  Report Type: Report from Study
  Country: US (occurrence: US)
  Receive Date: 20160602
  Receipt Date: 20160609
  Transmission Date: 20160815
  Serious: Yes (Death, Hospitalization)
  Sender: FDA-Public Use
  Company Number: US-ACTELION-A-US2016-137032

PATIENT
  Age: 69 Year
  Sex: Female

DRUGS (12)
  1. LANTUS [Concomitant]
     Active Substance: INSULIN GLARGINE
  2. TALWIN [Concomitant]
     Active Substance: PENTAZOCINE LACTATE
  3. TRACLEER [Suspect]
     Active Substance: BOSENTAN
     Indication: PULMONARY ARTERIAL HYPERTENSION
     Dosage: 125 MG, QD
     Route: 048
     Dates: start: 20090415
  4. CETIRIZINE [Concomitant]
     Active Substance: CETIRIZINE HYDROCHLORIDE
  5. PREDNISONE. [Concomitant]
     Active Substance: PREDNISONE
  6. BUSPIRONE [Concomitant]
     Active Substance: BUSPIRONE HYDROCHLORIDE
  7. EFFEXOR [Concomitant]
     Active Substance: VENLAFAXINE HYDROCHLORIDE
  8. FLEXERIL [Concomitant]
     Active Substance: CYCLOBENZAPRINE HYDROCHLORIDE
  9. HYDROXYZINE [Concomitant]
     Active Substance: HYDROXYZINE\HYDROXYZINE HYDROCHLORIDE
  10. FENTANYL. [Concomitant]
     Active Substance: FENTANYL
  11. TOPAMAX [Concomitant]
     Active Substance: TOPIRAMATE
  12. TORSEMIDE. [Concomitant]
     Active Substance: TORSEMIDE

REACTIONS (5)
  - Coronary artery bypass [Unknown]
  - Endotracheal intubation [Unknown]
  - Cardio-respiratory arrest [Fatal]
  - Acute myocardial infarction [Unknown]
  - Ischaemic cardiomyopathy [Unknown]

NARRATIVE: CASE EVENT DATE: 20160528
